FAERS Safety Report 9356143 (Version 3)
Quarter: 2014Q2

REPORT INFORMATION
  Report Type: Spontaneous
  Country: JP (occurrence: JP)
  Receive Date: 20130619
  Receipt Date: 20140623
  Transmission Date: 20141212
  Serious: Yes (Other)
  Sender: FDA-Public Use
  Company Number: PHHY2013JP057675

PATIENT
  Age: 80 Year
  Sex: Male
  Weight: 60 kg

DRUGS (8)
  1. DIOVAN [Suspect]
     Indication: HYPERTENSION
     Dosage: 80 MG, DAILY
     Route: 048
     Dates: start: 20130227, end: 20130518
  2. PRAVASTATIN SODIUM [Suspect]
     Indication: DYSLIPIDAEMIA
     Dosage: 10 MG, UNK
     Route: 048
     Dates: start: 20130322, end: 20130518
  3. AMLODIPINE BESILATE [Concomitant]
     Indication: HYPERTENSION
     Dosage: 5 MG
     Route: 048
     Dates: start: 20130214, end: 20130517
  4. DIAZEPAM [Concomitant]
     Dosage: UNK UKN, UNK
  5. FEXOFENADINE [Concomitant]
     Dosage: UNK UKN, UNK
     Dates: end: 20130530
  6. MAGMITT [Concomitant]
     Dosage: UNK UKN, UNK
  7. TAMSULOSIN HYDROCHLORIDE [Concomitant]
     Dosage: UNK UKN, UNK
  8. ROXISETART [Concomitant]
     Dosage: UNK UKN, UNK

REACTIONS (4)
  - Rhabdomyolysis [Recovering/Resolving]
  - Muscle spasms [Recovered/Resolved]
  - Oedema peripheral [Recovering/Resolving]
  - Pruritus [Unknown]
